FAERS Safety Report 4340372-X (Version None)
Quarter: 2004Q2

REPORT INFORMATION
  Report Type: 
  Country: None (occurrence: None)
  Receive Date: 20040408
  Receipt Date: 20040316
  Transmission Date: 20050107
  Serious: Yes (Other)
  Sender: FDA-Public Use
  Company Number: 200410088BBE

PATIENT
  Sex: Male

DRUGS (1)
  1. RHO(D) IMMUNE GLOBULIN (HUMAN) - MANUFACTURER UNKNOWN [Suspect]

REACTIONS (2)
  - ADVERSE EVENT [None]
  - MATERNAL DRUGS AFFECTING FOETUS [None]
